FAERS Safety Report 8924402 (Version 1)
Quarter: 2012Q4

REPORT INFORMATION
  Report Type: 
  Country: US (occurrence: US)
  Receive Date: 20121126
  Receipt Date: 20121126
  Transmission Date: 20130627
  Serious: Yes (Other)
  Sender: FDA-Public Use
  Company Number: PHEH2012US022875

PATIENT
  Sex: Male

DRUGS (7)
  1. DIOVAN [Suspect]
     Indication: HYPERTENSION
     Dosage: 160 mg, Daily
     Route: 048
  2. LISINOPRIL TABLETS [Suspect]
  3. METFORMIN [Concomitant]
  4. ATENOLOL [Concomitant]
  5. PRAVASTATIN [Concomitant]
  6. MULTIPLE VITAMINS [Concomitant]
  7. ASPIRIN [Concomitant]

REACTIONS (2)
  - Coronary artery disease [Unknown]
  - Chest pain [Unknown]
